FAERS Safety Report 11282291 (Version 1)
Quarter: 2015Q3

REPORT INFORMATION
  Report Type: Spontaneous
  Country: ES (occurrence: ES)
  Receive Date: 20150720
  Receipt Date: 20150720
  Transmission Date: 20151125
  Serious: Yes (Other)
  Sender: FDA-Public Use
  Company Number: ES-CIPLA LTD.-2015ES05840

PATIENT

DRUGS (5)
  1. TENOFOVIR DISOPROXIL FUMARATE. [Suspect]
     Active Substance: TENOFOVIR DISOPROXIL FUMARATE
     Dosage: 7 ADDITIONAL YEARS
     Route: 065
  2. TENOFOVIR DISOPROXIL FUMARATE. [Suspect]
     Active Substance: TENOFOVIR DISOPROXIL FUMARATE
     Indication: CHRONIC HEPATITIS B
     Dosage: ONCE A DAY FOR 48 WEEKS
     Route: 065
  3. TENOFOVIR DISOPROXIL FUMARATE. [Suspect]
     Active Substance: TENOFOVIR DISOPROXIL FUMARATE
     Dosage: RETREATMENT
     Route: 065
  4. ADEFOVIR [Suspect]
     Active Substance: ADEFOVIR
     Indication: CHRONIC HEPATITIS B
     Dosage: ONCE A DAY FOR 48 WEEKS
     Route: 065
  5. RECOMBINANT HEPATITIS B VACCINE [Suspect]
     Active Substance: HEPATITIS B VIRUS HBSAG SURFACE PROTEIN ANTIGEN
     Indication: CHRONIC HEPATITIS B
     Dosage: 20 ?G, AT THE END OF TREATMENT (EOT) AND AT 2-3 MONTHS AFTER EOT
     Route: 065

REACTIONS (2)
  - Alanine aminotransferase increased [Recovering/Resolving]
  - Virologic failure [Recovering/Resolving]
